FAERS Safety Report 12632204 (Version 2)
Quarter: 2016Q3

REPORT INFORMATION
  Report Type: Spontaneous
  Country: US (occurrence: US)
  Receive Date: 20160808
  Receipt Date: 20160808
  Transmission Date: 20161109
  Serious: No
  Sender: FDA-Public Use
  Company Number: US-BEH-2016062157

PATIENT
  Sex: Female

DRUGS (28)
  1. HIZENTRA [Suspect]
     Active Substance: HUMAN IMMUNOGLOBULIN G
     Route: 058
  2. ASPIRIN. [Concomitant]
     Active Substance: ASPIRIN
  3. CRESTOR [Concomitant]
     Active Substance: ROSUVASTATIN CALCIUM
  4. LIDOCAINE/PRILOCAINE [Concomitant]
     Active Substance: LIDOCAINE\PRILOCAINE
  5. OXYGEN. [Concomitant]
     Active Substance: OXYGEN
  6. LEVAQUIN [Concomitant]
     Active Substance: LEVOFLOXACIN
  7. LEVEMIR [Concomitant]
     Active Substance: INSULIN DETEMIR
  8. VITAMIN [Concomitant]
     Active Substance: VITAMINS
  9. MEDROL [Concomitant]
     Active Substance: METHYLPREDNISOLONE
  10. FENOFIBRATE. [Concomitant]
     Active Substance: FENOFIBRATE
  11. ALEVE [Concomitant]
     Active Substance: NAPROXEN SODIUM
  12. EPIPEN [Concomitant]
     Active Substance: EPINEPHRINE
  13. VICODIN [Concomitant]
     Active Substance: ACETAMINOPHEN\HYDROCODONE BITARTRATE
  14. VALIUM [Concomitant]
     Active Substance: DIAZEPAM
  15. BUSPIRONE [Concomitant]
     Active Substance: BUSPIRONE HYDROCHLORIDE
  16. HIZENTRA [Suspect]
     Active Substance: HUMAN IMMUNOGLOBULIN G
     Indication: STATUS ASTHMATICUS
     Route: 058
     Dates: start: 20130319
  17. ACETAMINOPHEN. [Concomitant]
     Active Substance: ACETAMINOPHEN
  18. PENICILLIN [Concomitant]
     Active Substance: PENICILLIN
  19. SINGULAIR [Concomitant]
     Active Substance: MONTELUKAST SODIUM
  20. BENZONATATE. [Concomitant]
     Active Substance: BENZONATATE
  21. GLIMEPIRIDE. [Concomitant]
     Active Substance: GLIMEPIRIDE
  22. OMEPRAZOLE. [Concomitant]
     Active Substance: OMEPRAZOLE
  23. HIZENTRA [Suspect]
     Active Substance: HUMAN IMMUNOGLOBULIN G
     Indication: IMMUNODEFICIENCY COMMON VARIABLE
     Route: 058
  24. DIPHENHYDRAMINE. [Concomitant]
     Active Substance: DIPHENHYDRAMINE
  25. IPRAT-ALBUT [Concomitant]
  26. CIPROFLOXACIN. [Concomitant]
     Active Substance: CIPROFLOXACIN
  27. NORVASC [Concomitant]
     Active Substance: AMLODIPINE BESYLATE
  28. PROVENTIL [Concomitant]
     Active Substance: ALBUTEROL

REACTIONS (1)
  - Fatigue [Unknown]
